FAERS Safety Report 25447750 (Version 1)
Quarter: 2025Q2

REPORT INFORMATION
  Report Type: Spontaneous
  Country: CH (occurrence: CH)
  Receive Date: 20250617
  Receipt Date: 20250617
  Transmission Date: 20250717
  Serious: Yes (Other)
  Sender: MERCK SHARP & DOHME LLC
  Company Number: CH-009507513-2295961

PATIENT

DRUGS (2)
  1. TEMOZOLOMIDE [Suspect]
     Active Substance: TEMOZOLOMIDE
     Indication: Microsatellite instability cancer
     Route: 048
  2. VORASIDENIB [Suspect]
     Active Substance: VORASIDENIB
     Indication: Microsatellite instability cancer

REACTIONS (1)
  - Malignant neoplasm progression [Not Recovered/Not Resolved]
